FAERS Safety Report 10173924 (Version 1)
Quarter: 2014Q2

REPORT INFORMATION
  Report Type: Spontaneous
  Country: US (occurrence: None)
  Receive Date: 20140514
  Receipt Date: 20140514
  Transmission Date: 20141212
  Serious: Yes (Hospitalization)
  Sender: FDA-Public Use
  Company Number: None

PATIENT
  Age: 42 Year
  Sex: Female

DRUGS (5)
  1. ROCURONIUM [Suspect]
     Indication: SEDATION
     Route: 042
     Dates: start: 20140304, end: 20140304
  2. ACETAMINOPHEN [Concomitant]
  3. DEXAMETHASONE [Concomitant]
  4. POTASSIUM CHLORIDE [Concomitant]
  5. RANIEDINE [Concomitant]

REACTIONS (1)
  - Anaphylactic reaction [None]
